FAERS Safety Report 16577283 (Version 1)
Quarter: 2019Q3

REPORT INFORMATION
  Report Type: Spontaneous
  Country: US (occurrence: US)
  Receive Date: 20190716
  Receipt Date: 20190716
  Transmission Date: 20191004
  Serious: No
  Sender: FDA-Public Use
  Company Number: US-JNJFOC-20190715250

PATIENT
  Sex: Female
  Weight: 86.26 kg

DRUGS (1)
  1. TYLENOL [Suspect]
     Active Substance: ACETAMINOPHEN
     Indication: ANALGESIC THERAPY
     Dosage: 2 TABLETS THE FIRST TIME AND ONE THE NEXT ONCE DAY
     Route: 048

REACTIONS (2)
  - Incorrect dose administered [Unknown]
  - Drug hypersensitivity [Not Recovered/Not Resolved]
